FAERS Safety Report 9731263 (Version 3)
Quarter: 2014Q1

REPORT INFORMATION
  Report Type: Spontaneous
  Country: GB (occurrence: GB)
  Receive Date: 20131205
  Receipt Date: 20140122
  Transmission Date: 20141002
  Serious: Yes (Hospitalization, Other)
  Sender: FDA-Public Use
  Company Number: GB-AMGEN-GBRSP2013085239

PATIENT
  Age: 43 Year
  Sex: Female
  Weight: 42 kg

DRUGS (4)
  1. ENBREL [Suspect]
     Indication: ANKYLOSING SPONDYLITIS
     Dosage: 50 MG, WEEKLY
     Route: 058
     Dates: start: 201104, end: 201301
  2. NITROFURANTOIN [Concomitant]
     Indication: INFECTION PROPHYLAXIS
     Dosage: 50 MG, 4X/DAY
     Route: 048
     Dates: start: 20100928
  3. CO-DYDRAMOL [Concomitant]
     Indication: PAIN
     Dosage: 2 DF, 4X/DAY
     Route: 048
     Dates: start: 20100928
  4. AMOXICILLIN [Concomitant]
     Indication: LOWER RESPIRATORY TRACT INFECTION
     Dosage: 500 MG, 3X/DAY
     Route: 048
     Dates: start: 20121024, end: 20121101

REACTIONS (7)
  - Central nervous system inflammation [Recovered/Resolved]
  - Confusional state [Recovered/Resolved]
  - Weight decreased [Recovered/Resolved]
  - Nausea [Recovered/Resolved]
  - Decreased appetite [Recovered/Resolved]
  - Headache [Not Recovered/Not Resolved]
  - Vomiting [Recovered/Resolved]
